FAERS Safety Report 10072080 (Version 1)
Quarter: 2014Q2

REPORT INFORMATION
  Report Type: Spontaneous
  Country: JP (occurrence: None)
  Receive Date: 20140409
  Receipt Date: 20140409
  Transmission Date: 20141212
  Serious: Yes (Hospitalization)
  Sender: FDA-Public Use
  Company Number: B140327005

PATIENT
  Age: 9 Month
  Sex: Female
  Weight: 9.4 kg

DRUGS (3)
  1. BUPHENYL [Suspect]
     Indication: CHOLESTASIS
     Dosage: INCREASED WEEKLY
     Route: 048
     Dates: start: 20140218
  2. URSO (URSODEOXYCHOLIC ACID) [Concomitant]
  3. KAYTWO (MENATETRENONE) [Concomitant]

REACTIONS (13)
  - Muscle spasticity [None]
  - Joint hyperextension [None]
  - Hypertonia [None]
  - Jaundice [None]
  - Depressed level of consciousness [None]
  - Pseudomonal sepsis [None]
  - Continuous haemodiafiltration [None]
  - Ascites [None]
  - Extrapyramidal disorder [None]
  - Dyskinesia [None]
  - Liver transplant [None]
  - Cholestasis [None]
  - Condition aggravated [None]
